FAERS Safety Report 9349589 (Version 1)
Quarter: 2013Q2

REPORT INFORMATION
  Report Type: Spontaneous
  Country: FI (occurrence: FI)
  Receive Date: 20130614
  Receipt Date: 20130614
  Transmission Date: 20140414
  Serious: Yes (Other)
  Sender: FDA-Public Use
  Company Number: FI-ELI_LILLY_AND_COMPANY-FI201303003330

PATIENT
  Sex: Female

DRUGS (11)
  1. FORSTEO [Suspect]
     Indication: OSTEOPOROSIS
     Dosage: 20MCG, DAILY
     Route: 065
     Dates: start: 20130128
  2. FORSTEO [Suspect]
     Dosage: 20 UG, EACH EVENING
  3. LINATIL [Concomitant]
     Indication: BLOOD PRESSURE
     Dosage: 10MG, UNK
  4. AMITRID [Concomitant]
     Indication: BLOOD PRESSURE
     Dosage: 1 TAB, UNK
  5. KALCIPOS-D [Concomitant]
     Dosage: 500MG, TWICE DAILY
  6. PANACOD [Concomitant]
     Dosage: 500MG, BID
  7. PARA-TABS [Concomitant]
     Dosage: 1G TWICE DAILY
  8. TRAMAL [Concomitant]
     Indication: PAIN
     Dosage: 100 MG, QD
     Route: 065
  9. PROTELOS [Concomitant]
     Dosage: UNK, UNKNOWN
     Route: 065
  10. CALCIUM [Concomitant]
     Dosage: UNK, UNKNOWN
     Route: 065
  11. VITAMIN D [Concomitant]
     Dosage: UNK, UNKNOWN
     Route: 065

REACTIONS (10)
  - Blood pressure increased [Unknown]
  - Pelvic fracture [Recovering/Resolving]
  - Pelvic pain [Recovering/Resolving]
  - Tremor [Recovered/Resolved]
  - Muscle contractions involuntary [Recovering/Resolving]
  - Dizziness [Recovering/Resolving]
  - Speech disorder [Recovering/Resolving]
  - Heart rate decreased [Unknown]
  - Hyperhidrosis [Recovered/Resolved]
  - Blood creatinine increased [Unknown]
